FAERS Safety Report 14546830 (Version 1)
Quarter: 2018Q1

REPORT INFORMATION
  Report Type: Spontaneous
  Country: US (occurrence: US)
  Receive Date: 20180219
  Receipt Date: 20180219
  Transmission Date: 20180509
  Serious: No
  Sender: FDA-Public Use
  Company Number: US-PFIZER INC-2018003629

PATIENT
  Age: 79 Year
  Sex: Male
  Weight: 72.56 kg

DRUGS (4)
  1. LYRICA [Suspect]
     Active Substance: PREGABALIN
     Indication: BURNING SENSATION
     Dosage: 300 MG, TAKE ONE CAPSULE BY MOUTH TWICE DAILY
     Route: 048
  2. LYRICA [Suspect]
     Active Substance: PREGABALIN
     Dosage: 50 MG, 2X/DAY (IN THE MORNING AND ONCE IN THE EVENING)
  3. LYRICA [Suspect]
     Active Substance: PREGABALIN
     Dosage: 3 DF, UNK (3 CAPSULES AT NIGHT FOR SLEEP)
     Dates: start: 201701
  4. LYRICA [Suspect]
     Active Substance: PREGABALIN
     Dosage: 150 MG, 2X/DAY (IN THE MORNING AND AT NIGHT)
     Route: 048

REACTIONS (2)
  - Drug ineffective [Recovering/Resolving]
  - Intentional product misuse [Unknown]

NARRATIVE: CASE EVENT DATE: 201701
